FAERS Safety Report 8239820-4 (Version None)
Quarter: 2012Q1

REPORT INFORMATION
  Report Type: 
  Country: None (occurrence: None)
  Receive Date: 20120328
  Receipt Date: 20120320
  Transmission Date: 20120608
  Serious: Yes (Other)
  Sender: FDA-Public Use
  Company Number: US-ASTELLAS-2012US002967

PATIENT
  Sex: Male
  Weight: 48 kg

DRUGS (1)
  1. PROGRAF [Suspect]
     Indication: LIVER TRANSPLANT
     Dosage: 3 MG, BID
     Route: 048
     Dates: start: 20010307

REACTIONS (6)
  - UNDERDOSE [None]
  - IMMUNOSUPPRESSANT DRUG LEVEL DECREASED [None]
  - GRAFT COMPLICATION [None]
  - WRONG TECHNIQUE IN DRUG USAGE PROCESS [None]
  - LIVER TRANSPLANT REJECTION [None]
  - TREMOR [None]
